FAERS Safety Report 11769399 (Version 2)
Quarter: 2015Q4

REPORT INFORMATION
  Report Type: Spontaneous
  Country: JP (occurrence: JP)
  Receive Date: 20151123
  Receipt Date: 20151203
  Transmission Date: 20160304
  Serious: Yes (Other)
  Sender: FDA-Public Use
  Company Number: JP-EMD SERONO-8054790

PATIENT
  Age: 48 Year
  Sex: Female

DRUGS (1)
  1. SAIZEN [Suspect]
     Active Substance: SOMATROPIN
     Indication: BODY HEIGHT BELOW NORMAL
     Route: 065

REACTIONS (7)
  - Adrenocorticotropic hormone deficiency [Unknown]
  - Blood thyroid stimulating hormone decreased [Unknown]
  - Growth hormone deficiency [Unknown]
  - Osteoporosis [Unknown]
  - Diabetes insipidus [Unknown]
  - Non-alcoholic steatohepatitis [Unknown]
  - Gonadotrophin releasing hormone deficiency [Unknown]
